FAERS Safety Report 9595929 (Version 1)
Quarter: 2013Q4

REPORT INFORMATION
  Report Type: Spontaneous
  Country: US (occurrence: US)
  Receive Date: 20131004
  Receipt Date: 20131004
  Transmission Date: 20140711
  Serious: No
  Sender: FDA-Public Use
  Company Number: US-PURDUE-USA-2012-0093901

PATIENT
  Age: 54 Year
  Sex: Female

DRUGS (7)
  1. BUTRANS [Suspect]
     Indication: FIBROMYALGIA
     Dosage: 5 MCG, WEEKLY
     Route: 062
     Dates: start: 20120926, end: 20120927
  2. BUTRANS [Suspect]
     Indication: ARTHRALGIA
  3. CYMBALTA [Concomitant]
     Indication: FIBROMYALGIA
     Dosage: 60 MG, DAILY
     Route: 048
  4. ARAVA [Concomitant]
     Indication: ARTHRITIS
     Dosage: UNK
     Route: 048
  5. HUMIRA [Concomitant]
     Indication: ARTHRITIS
     Dosage: Q 2 WEEKS
     Route: 041
  6. ATENOLOL [Concomitant]
     Indication: HYPERTENSION
     Dosage: UNK
     Route: 048
  7. SOMA [Concomitant]
     Indication: SLEEP DISORDER
     Dosage: 1 TABLET, HS
     Route: 048

REACTIONS (3)
  - Vomiting [Not Recovered/Not Resolved]
  - Hyperhidrosis [Not Recovered/Not Resolved]
  - Nausea [Not Recovered/Not Resolved]
